FAERS Safety Report 4518962-0 (Version None)
Quarter: 2004Q4

REPORT INFORMATION
  Report Type: 
  Country: None (occurrence: None)
  Receive Date: 20041203
  Receipt Date: 20041203
  Transmission Date: 20050328
  Serious: Yes (Hospitalization)
  Sender: FDA-Public Use
  Company Number: None

PATIENT
  Age: 64 Year
  Sex: Male
  Weight: 77 kg

DRUGS (2)
  1. ENBREL [Suspect]
     Indication: PSORIATIC ARTHROPATHY
     Dosage: 25 MG, SC, TWICE WEEKLY
     Route: 058
     Dates: start: 20040521, end: 20041104
  2. NS [Concomitant]

REACTIONS (2)
  - ABSCESS [None]
  - INFECTION [None]
